FAERS Safety Report 6535362-2 (Version None)
Quarter: 2010Q1

REPORT INFORMATION
  Report Type: 
  Country: None (occurrence: None)
  Receive Date: 20100113
  Receipt Date: 20100105
  Transmission Date: 20100710
  Serious: Yes (Other)
  Sender: FDA-Public Use
  Company Number: GB-JNJFOC-20091206809

PATIENT
  Age: 9 Year
  Sex: Female

DRUGS (2)
  1. TOPIRAMATE [Suspect]
     Indication: COMPLEX PARTIAL SEIZURES
     Dosage: 4.5 MG/KG 2 IN 1 DAY
     Route: 065
  2. TOPIRAMATE [Suspect]
     Dosage: AT NIGHT
     Route: 065

REACTIONS (1)
  - ALLODYNIA [None]
